FAERS Safety Report 6430734-9 (Version None)
Quarter: 2009Q4

REPORT INFORMATION
  Report Type: 
  Country: None (occurrence: None)
  Receive Date: 20091105
  Receipt Date: 20091105
  Transmission Date: 20100525
  Serious: Yes (Hospitalization)
  Sender: FDA-Public Use
  Company Number: None

PATIENT
  Sex: Male
  Weight: 86.6 kg

DRUGS (4)
  1. CISPLATIN [Suspect]
     Dosage: 160 MG
     Dates: end: 20090921
  2. TAXOTERE [Suspect]
     Dosage: 160 MG
     Dates: end: 20090921
  3. IBUPROFEN [Concomitant]
  4. LISINOPRIL [Concomitant]

REACTIONS (13)
  - ASTHENIA [None]
  - BLOOD CREATININE INCREASED [None]
  - BLOOD CULTURE POSITIVE [None]
  - CHILLS [None]
  - CULTURE URINE POSITIVE [None]
  - DECREASED APPETITE [None]
  - DEHYDRATION [None]
  - DIARRHOEA [None]
  - ESCHERICHIA INFECTION [None]
  - HAEMOGLOBIN DECREASED [None]
  - HEADACHE [None]
  - MYALGIA [None]
  - PYREXIA [None]
